FAERS Safety Report 7445327-4 (Version None)
Quarter: 2011Q2

REPORT INFORMATION
  Report Type: 
  Country: None (occurrence: None)
  Receive Date: 20110429
  Receipt Date: 20100706
  Transmission Date: 20111010
  Serious: No
  Sender: FDA-Public Use
  Company Number: A0870276A

PATIENT

DRUGS (3)
  1. HYDROXYZINE [Suspect]
     Route: 065
  2. ZOFRAN [Suspect]
     Route: 065
  3. RADIATION THERAPY [Suspect]

REACTIONS (2)
  - DECREASED APPETITE [None]
  - NAUSEA [None]
